FAERS Safety Report 6298420-6 (Version None)
Quarter: 2009Q3

REPORT INFORMATION
  Report Type: 
  Country: None (occurrence: None)
  Receive Date: 20090805
  Receipt Date: 20090727
  Transmission Date: 20100115
  Serious: Yes (Other)
  Sender: FDA-Public Use
  Company Number: US-ELI_LILLY_AND_COMPANY-US200907005945

PATIENT
  Age: 52 Year
  Sex: Female

DRUGS (4)
  1. CYMBALTA [Suspect]
     Indication: DEPRESSION
     Dosage: 60 MG, DAILY (1/D)
     Dates: start: 20080701, end: 20090101
  2. HUMULIN 70/30 [Concomitant]
     Indication: DIABETES MELLITUS
  3. GLYBURIDE [Concomitant]
  4. METFORMIN [Concomitant]

REACTIONS (1)
  - LIVER INJURY [None]
